FAERS Safety Report 16074032 (Version 1)
Quarter: 2019Q1

REPORT INFORMATION
  Report Type: Spontaneous
  Country: US (occurrence: US)
  Receive Date: 20190314
  Receipt Date: 20190314
  Transmission Date: 20190418
  Serious: Yes (Death)
  Sender: FDA-Public Use
  Company Number: US-SYNEX-T201902325

PATIENT

DRUGS (2)
  1. INOMAX [Suspect]
     Active Substance: NITRIC OXIDE
     Indication: PRODUCT USED FOR UNKNOWN INDICATION
     Dosage: UNK
     Route: 065
     Dates: start: 20181008, end: 20181009
  2. INOMAX [Suspect]
     Active Substance: NITRIC OXIDE
     Dosage: UNK
     Route: 065
     Dates: start: 20181010

REACTIONS (3)
  - Respiratory tract infection viral [Fatal]
  - Hypotension [Fatal]
  - Anaemia [Fatal]
